FAERS Safety Report 6486893-5 (Version None)
Quarter: 2009Q4

REPORT INFORMATION
  Report Type: 
  Country: None (occurrence: None)
  Receive Date: 20091210
  Receipt Date: 20091207
  Transmission Date: 20100525
  Serious: Yes (Other)
  Sender: FDA-Public Use
  Company Number: US-TEVA-211801USA

PATIENT
  Sex: Male

DRUGS (1)
  1. AMPHETAMINES [Suspect]
     Indication: DEPRESSION
     Route: 048

REACTIONS (1)
  - MACULAR DEGENERATION [None]
